FAERS Safety Report 7392982-3 (Version None)
Quarter: 2011Q2

REPORT INFORMATION
  Report Type: 
  Country: None (occurrence: None)
  Receive Date: 20110404
  Receipt Date: 20110325
  Transmission Date: 20111010
  Serious: Yes (Other)
  Sender: FDA-Public Use
  Company Number: US-BAXTER-2011BH008048

PATIENT
  Sex: Female

DRUGS (2)
  1. REGLAN [Suspect]
     Indication: PRODUCT USED FOR UNKNOWN INDICATION
     Route: 042
     Dates: start: 20060101, end: 20091001
  2. REGLAN [Suspect]
     Route: 048
     Dates: start: 20060101, end: 20091001

REACTIONS (2)
  - CONVULSION [None]
  - FACIAL SPASM [None]
